FAERS Safety Report 10188172 (Version 2)
Quarter: 2014Q3

REPORT INFORMATION
  Report Type: Spontaneous
  Country: None (occurrence: None)
  Receive Date: 20140520
  Receipt Date: 20140815
  Transmission Date: 20150326
  Serious: Yes (Other)
  Sender: FDA-Public Use
  Company Number: 2014050057

PATIENT
  Age: 72 Year
  Sex: Male

DRUGS (7)
  1. LUPRAC [Suspect]
     Active Substance: TORSEMIDE
     Indication: OEDEMA DUE TO CARDIAC DISEASE
     Dosage: 4 MG, 1 IN 1 D
     Route: 048
     Dates: start: 20140403, end: 20140416
  2. AIMIX(IRBESARTAN, AMLODIPINE BESILATE, ATORVASTATIN CALCIUM, DOXAZOSIN MESILATE, URSODEOXYCHOLIC ACID, EZETIMIBE) [Concomitant]
  3. ATORVASTATIN CALCIUM) [Concomitant]
  4. ZETIA (EZETEMIBE) [Concomitant]
  5. OMEPRAZOLE. [Concomitant]
     Active Substance: OMEPRAZOLE
  6. URSO(URSODEOXYCHOLIC ACID) [Concomitant]
  7. CARDENALIN(DOXAZOSIN MESILATE) [Concomitant]

REACTIONS (2)
  - Hypersomnia [None]
  - Somnolence [None]

NARRATIVE: CASE EVENT DATE: 20140403
